FAERS Safety Report 15193033 (Version 5)
Quarter: 2018Q4

REPORT INFORMATION
  Report Type: Report from Study
  Country: ES (occurrence: ES)
  Receive Date: 20180725
  Receipt Date: 20181207
  Transmission Date: 20190204
  Serious: Yes (Hospitalization)
  Sender: FDA-Public Use
  Company Number: ES-TEVA-2018-ES-928366

PATIENT
  Age: 47 Year
  Sex: Male

DRUGS (6)
  1. PANTOPRAZOL 40 [Concomitant]
     Active Substance: PANTOPRAZOLE SODIUM
     Dosage: 1 AMP
     Route: 042
  2. INMUNOGLOBULINA ANTI TIMOCITICA [Suspect]
     Active Substance: THYMOCYTE IMMUNE GLOBULIN NOS
     Indication: RENAL TRANSPLANT
     Dosage: 100 MILLIGRAM DAILY;
     Route: 042
     Dates: start: 20170213, end: 20170218
  3. PARACETAMOL 1GR [Concomitant]
     Dosage: 1-1-1
     Route: 042
  4. FUROSEMIDA 20 [Concomitant]
     Route: 042
  5. HIDROCORTISONA 100 [Suspect]
     Active Substance: HYDROCORTISONE
     Indication: RENAL TRANSPLANT
     Dosage: 100 MILLIGRAM DAILY;
     Route: 042
     Dates: start: 20170213, end: 20170214
  6. METILPREDNISOLONA 100 [Suspect]
     Active Substance: METHYLPREDNISOLONE
     Indication: RENAL TRANSPLANT
     Dosage: 100 MILLIGRAM DAILY;
     Route: 042
     Dates: start: 20170213, end: 20170216

REACTIONS (1)
  - Pancreatitis acute [Recovered/Resolved]

NARRATIVE: CASE EVENT DATE: 20170218
